FAERS Safety Report 8827247 (Version 4)
Quarter: 2016Q3

REPORT INFORMATION
  Report Type: Spontaneous
  Country: US (occurrence: US)
  Receive Date: 20121005
  Receipt Date: 20160907
  Transmission Date: 20161109
  Serious: No
  Sender: FDA-Public Use
  Company Number: US-ASTRAZENECA-2012SE74980

PATIENT
  Age: 78 Year
  Sex: Female
  Weight: 103.4 kg

DRUGS (14)
  1. RHINOCORT AQUA [Suspect]
     Active Substance: BUDESONIDE
     Indication: HYPERSENSITIVITY
     Route: 045
  2. LAMICTAL [Concomitant]
     Active Substance: LAMOTRIGINE
     Indication: DEPRESSION
     Dosage: 200.0MG UNKNOWN
     Route: 048
  3. AMLODIPINE [Concomitant]
     Active Substance: AMLODIPINE BESYLATE
  4. FUROSEMIDE. [Concomitant]
     Active Substance: FUROSEMIDE
  5. RHINOCORT AQUA [Suspect]
     Active Substance: BUDESONIDE
     Indication: ASTHMA
     Route: 045
  6. SYMBICORT [Suspect]
     Active Substance: BUDESONIDE\FORMOTEROL FUMARATE DIHYDRATE
     Route: 055
  7. NEXIUM [Suspect]
     Active Substance: ESOMEPRAZOLE MAGNESIUM
     Indication: GASTROOESOPHAGEAL REFLUX DISEASE
     Route: 048
  8. SEROQUEL XR [Suspect]
     Active Substance: QUETIAPINE FUMARATE
     Indication: BIPOLAR DISORDER
     Route: 048
     Dates: start: 20160719
  9. SEROQUEL XR [Suspect]
     Active Substance: QUETIAPINE FUMARATE
     Indication: DEPRESSION
     Route: 048
     Dates: start: 20160719
  10. NEXIUM [Suspect]
     Active Substance: ESOMEPRAZOLE MAGNESIUM
     Indication: HERNIA
     Route: 048
  11. GABAPENTIN. [Concomitant]
     Active Substance: GABAPENTIN
  12. SEROQUEL XR [Suspect]
     Active Substance: QUETIAPINE FUMARATE
     Indication: BIPOLAR DISORDER
     Route: 048
     Dates: start: 2013
  13. SEROQUEL XR [Suspect]
     Active Substance: QUETIAPINE FUMARATE
     Indication: DEPRESSION
     Route: 048
     Dates: start: 2013
  14. SINGULAIR [Concomitant]
     Active Substance: MONTELUKAST SODIUM

REACTIONS (10)
  - Herpes zoster [Unknown]
  - Abdominal discomfort [Unknown]
  - Weight increased [Not Recovered/Not Resolved]
  - Multiple allergies [Unknown]
  - Malaise [Unknown]
  - Peripheral swelling [Unknown]
  - Off label use [Not Recovered/Not Resolved]
  - Product use issue [Unknown]
  - Sinusitis [Not Recovered/Not Resolved]
  - Drug dose omission [Unknown]

NARRATIVE: CASE EVENT DATE: 2013
